FAERS Safety Report 12898824 (Version 1)
Quarter: 2016Q4

REPORT INFORMATION
  Report Type: Spontaneous
  Country: US (occurrence: US)
  Receive Date: 20161101
  Receipt Date: 20161101
  Transmission Date: 20170207
  Serious: Yes (Other)
  Sender: FDA-Public Use
  Company Number: US-STRIDES ARCOLAB LIMITED-2016SP016569

PATIENT

DRUGS (1)
  1. TACROLIMUS. [Suspect]
     Active Substance: TACROLIMUS
     Indication: IMMUNOSUPPRESSION
     Dosage: UNK

REACTIONS (8)
  - Weight bearing difficulty [Recovered/Resolved]
  - Pain in extremity [Recovered/Resolved]
  - Tenderness [Recovered/Resolved]
  - Post transplant distal limb syndrome [Recovered/Resolved]
  - Areflexia [Recovered/Resolved]
  - Gait disturbance [Recovered/Resolved]
  - Drug level above therapeutic [Unknown]
  - Peroneal nerve palsy [Recovered/Resolved]
